FAERS Safety Report 22291071 (Version 2)
Quarter: 2023Q2

REPORT INFORMATION
  Report Type: Spontaneous
  Country: IT (occurrence: IT)
  Receive Date: 20230506
  Receipt Date: 20230603
  Transmission Date: 20230722
  Serious: Yes (Other)
  Sender: FDA-Public Use
  Company Number: IT-MINISAL02-921376

PATIENT
  Age: 54 Year
  Sex: Female

DRUGS (3)
  1. PEMETREXED [Suspect]
     Active Substance: PEMETREXED
     Indication: Lung adenocarcinoma
     Dosage: 970 MILLIGRAM, CYCLICAL
     Route: 065
     Dates: start: 20220127, end: 20220527
  2. PEMETREXED [Suspect]
     Active Substance: PEMETREXED
     Dosage: 970 MILLIGRAM, CYCLICAL
     Route: 065
     Dates: start: 20220506, end: 20220527
  3. KEYTRUDA [Suspect]
     Active Substance: PEMBROLIZUMAB
     Indication: Lung adenocarcinoma
     Dosage: 200 MILLIGRAM, CYCLICAL
     Route: 065
     Dates: start: 20220127, end: 20220527

REACTIONS (1)
  - Acute kidney injury [Recovering/Resolving]

NARRATIVE: CASE EVENT DATE: 20220427
